FAERS Safety Report 7762013-1 (Version None)
Quarter: 2011Q3

REPORT INFORMATION
  Report Type: 
  Country: None (occurrence: None)
  Receive Date: 20110920
  Receipt Date: 20110907
  Transmission Date: 20111222
  Serious: Yes (Hospitalization, Other)
  Sender: FDA-Public Use
  Company Number: ES-ELI_LILLY_AND_COMPANY-ES201108000910

PATIENT
  Sex: Female

DRUGS (9)
  1. FORTEO [Suspect]
     Dosage: 20 UG, QD
     Route: 058
     Dates: start: 20110802
  2. SERTRALINE HYDROCHLORIDE [Concomitant]
     Indication: HYPERTENSION
     Dosage: UNK
     Route: 048
  3. SINTROM [Concomitant]
     Indication: ARRHYTHMIA
     Dosage: UNK, PRN
     Route: 048
     Dates: start: 20100101
  4. OMEPRAZOLE [Concomitant]
  5. FORTEO [Suspect]
     Indication: OSTEOPOROSIS
     Dosage: 20 UG, QD
     Route: 058
     Dates: start: 20110626
  6. NATECAL D [Concomitant]
  7. BISOPROLOL FUMARATE [Concomitant]
  8. RAMIPRIL [Concomitant]
     Indication: HYPERTENSION
     Dosage: UNK
     Route: 048
  9. SIMVASTATINA [Concomitant]
     Indication: BLOOD CHOLESTEROL
     Dosage: UNK
     Route: 048

REACTIONS (13)
  - BLOOD CHLORIDE DECREASED [None]
  - DEVICE MALFUNCTION [None]
  - TACHYCARDIA [None]
  - DYSPNOEA EXERTIONAL [None]
  - BLOOD UREA INCREASED [None]
  - ATRIAL FIBRILLATION [None]
  - BLOOD GLUCOSE INCREASED [None]
  - TROPONIN T INCREASED [None]
  - BLOOD SODIUM DECREASED [None]
  - BRAIN NATRIURETIC PEPTIDE INCREASED [None]
  - FEELING ABNORMAL [None]
  - INTERNATIONAL NORMALISED RATIO ABNORMAL [None]
  - BLOOD CREATININE INCREASED [None]
